FAERS Safety Report 15388792 (Version 3)
Quarter: 2019Q1

REPORT INFORMATION
  Report Type: Spontaneous
  Country: US (occurrence: US)
  Receive Date: 20180916
  Receipt Date: 20190102
  Transmission Date: 20190417
  Serious: Yes (Hospitalization)
  Sender: FDA-Public Use
  Company Number: US-BIOGEN-2018BI00632020

PATIENT
  Age: 52 Year
  Sex: Female
  Weight: 53.57 kg

DRUGS (2)
  1. AVONEX [Suspect]
     Active Substance: INTERFERON BETA-1A
     Route: 048
  2. AVONEX [Suspect]
     Active Substance: INTERFERON BETA-1A
     Indication: MULTIPLE SCLEROSIS
     Route: 048
     Dates: start: 20060515

REACTIONS (7)
  - Depression [Unknown]
  - Aphasia [Recovered/Resolved]
  - Gait disturbance [Unknown]
  - Crying [Unknown]
  - Cognitive disorder [Unknown]
  - Anxiety [Unknown]
  - Generalised tonic-clonic seizure [Recovered/Resolved]

NARRATIVE: CASE EVENT DATE: 20171128
